FAERS Safety Report 10064524 (Version 3)
Quarter: 2014Q3

REPORT INFORMATION
  Report Type: Spontaneous
  Country: US (occurrence: US)
  Receive Date: 20140408
  Receipt Date: 20140915
  Transmission Date: 20150326
  Serious: Yes (Life-Threatening, Hospitalization)
  Sender: FDA-Public Use
  Company Number: US-BRISTOL-MYERS SQUIBB COMPANY-20594883

PATIENT
  Age: 26 Year
  Sex: Male

DRUGS (2)
  1. ABILIFY [Suspect]
     Active Substance: ARIPIPRAZOLE
     Indication: AGGRESSION
     Dosage: DOSE INCREASED 30 MG?ONGOING?ABILIFY 30MG TABLETS-LOT# IS 3876854,EXP.FEB16
     Route: 048
     Dates: start: 2004
  2. ABILIFY [Suspect]
     Active Substance: ARIPIPRAZOLE
     Indication: IMPULSE-CONTROL DISORDER
     Dosage: DOSE INCREASED 30 MG?ONGOING?ABILIFY 30MG TABLETS-LOT# IS 3876854,EXP.FEB16
     Route: 048
     Dates: start: 2004

REACTIONS (7)
  - Arthritis [Not Recovered/Not Resolved]
  - Tooth fracture [Unknown]
  - Off label use [Unknown]
  - Cardiac arrest [Unknown]
  - Disturbance in attention [Unknown]
  - Convulsion [Not Recovered/Not Resolved]
  - Weight decreased [Unknown]
